FAERS Safety Report 15543231 (Version 2)
Quarter: 2018Q4

REPORT INFORMATION
  Report Type: Spontaneous
  Country: US (occurrence: US)
  Receive Date: 20181023
  Receipt Date: 20181023
  Transmission Date: 20190205
  Serious: No
  Sender: FDA-Public Use
  Company Number: US-TEIKOKU PHARMA USA-TPU2018-00622

PATIENT
  Age: 60 Year
  Sex: Female
  Weight: 65.38 kg

DRUGS (6)
  1. CYMBALTA [Concomitant]
     Active Substance: DULOXETINE HYDROCHLORIDE
     Indication: DEPRESSION
  2. LIDODERM [Suspect]
     Active Substance: LIDOCAINE
     Indication: NEUROPATHY PERIPHERAL
     Dates: start: 2009
  3. OPANA ER [Concomitant]
     Active Substance: OXYMORPHONE HYDROCHLORIDE
     Indication: PAIN
     Dosage: TAKING TWO 40 MG TWICE A DAY; STARTED ON A LOWER DOSE AND INCREASED
     Dates: start: 2007, end: 200712
  4. HYDROCODONE BITARTRATE AND ACETAMINOPHEN [Concomitant]
     Active Substance: ACETAMINOPHEN\HYDROCODONE BITARTRATE
     Indication: BREAKTHROUGH PAIN
     Dates: start: 2007
  5. LIDOCAINE PATCH [Suspect]
     Active Substance: LIDOCAINE
     Indication: PRODUCT USED FOR UNKNOWN INDICATION
  6. WELLBUTRIN [Concomitant]
     Active Substance: BUPROPION HYDROCHLORIDE
     Indication: DEPRESSION
     Dosage: STARTED AT A LOWER DOSE BUT UPPED IN 2009 TO 300 MG DAILY
     Dates: start: 2007

REACTIONS (2)
  - Surgery [Unknown]
  - Pain [Unknown]
